FAERS Safety Report 24558973 (Version 1)
Quarter: 2024Q4

REPORT INFORMATION
  Report Type: Report from Study
  Country: US (occurrence: US)
  Receive Date: 20241029
  Receipt Date: 20241029
  Transmission Date: 20250114
  Serious: Yes (Life-Threatening, Hospitalization, Other)
  Sender: BRISTOL-MYERS SQUIBB COMPANY
  Company Number: US-BRISTOL-MYERS SQUIBB COMPANY-2024-149918

PATIENT
  Age: 70 Year
  Sex: Male

DRUGS (2)
  1. BREYANZI [Suspect]
     Active Substance: LISOCABTAGENE MARALEUCEL
     Indication: Diffuse large B-cell lymphoma recurrent
     Route: 042
     Dates: start: 20240829
  2. BREYANZI [Suspect]
     Active Substance: LISOCABTAGENE MARALEUCEL
     Indication: Diffuse large B-cell lymphoma refractory

REACTIONS (3)
  - Neurotoxicity [Recovering/Resolving]
  - Febrile neutropenia [Unknown]
  - Septic shock [Unknown]

NARRATIVE: CASE EVENT DATE: 20240901
